FAERS Safety Report 20099473 (Version 1)
Quarter: 2021Q4

REPORT INFORMATION
  Report Type: Spontaneous
  Country: US (occurrence: US)
  Receive Date: 20211122
  Receipt Date: 20211122
  Transmission Date: 20220303
  Serious: No
  Sender: FDA-Public Use
  Company Number: US-CELGENE-USA-20211104243

PATIENT
  Sex: Male
  Weight: 96.702 kg

DRUGS (15)
  1. REVLIMID [Suspect]
     Active Substance: LENALIDOMIDE
     Indication: Plasma cell myeloma
     Dosage: 10 MILLIGRAM
     Route: 048
     Dates: start: 201910
  2. REVLIMID [Suspect]
     Active Substance: LENALIDOMIDE
     Dosage: 5 MILLIGRAM
     Route: 048
     Dates: start: 202003
  3. REVLIMID [Suspect]
     Active Substance: LENALIDOMIDE
     Dosage: 10 MILLIGRAM
     Route: 048
     Dates: start: 202004
  4. REVLIMID [Suspect]
     Active Substance: LENALIDOMIDE
     Dosage: 5 MILLIGRAM
     Route: 048
     Dates: start: 202005
  5. VELCADE [Suspect]
     Active Substance: BORTEZOMIB
     Indication: Product used for unknown indication
     Route: 065
  6. DEXAMETHASONE [Suspect]
     Active Substance: DEXAMETHASONE
     Indication: Product used for unknown indication
     Route: 065
  7. SULF-TM SS TA [Concomitant]
     Indication: Product used for unknown indication
     Route: 065
  8. NA 55 MCG SP [Concomitant]
     Indication: Product used for unknown indication
     Route: 065
  9. L D AS E 81 MG T [Concomitant]
     Indication: Product used for unknown indication
     Dosage: LOW DOSE
     Route: 048
  10. CA 600 PL D3 [Concomitant]
     Indication: Product used for unknown indication
     Route: 065
  11. MA OX 400 M TA [Concomitant]
     Indication: Product used for unknown indication
     Route: 048
  12. AC 400 MG TA [Concomitant]
     Indication: Product used for unknown indication
     Route: 048
  13. SULF-TRIM [Concomitant]
     Indication: Product used for unknown indication
     Route: 065
  14. XG 120 MG/1.7 V [Concomitant]
     Indication: Product used for unknown indication
     Route: 065
  15. PR 10000/ML VI [Concomitant]
     Indication: Product used for unknown indication
     Dosage: 10000/ML
     Route: 065

REACTIONS (4)
  - Weight decreased [Unknown]
  - Decreased appetite [Unknown]
  - Blood glucose increased [Recovered/Resolved]
  - Diarrhoea [Unknown]
